FAERS Safety Report 15812807 (Version 1)
Quarter: 2019Q1

REPORT INFORMATION
  Report Type: Spontaneous
  Country: IE (occurrence: IE)
  Receive Date: 20190111
  Receipt Date: 20190111
  Transmission Date: 20190417
  Serious: Yes (Death)
  Sender: FDA-Public Use
  Company Number: IE-LINDE-IE-LHC-2019002

PATIENT
  Age: 85 Year
  Sex: Male

DRUGS (1)
  1. LIQUID OXYGEN [Suspect]
     Active Substance: OXYGEN
     Indication: RESPIRATORY DISORDER
     Route: 055

REACTIONS (1)
  - Intentional product misuse [Fatal]

NARRATIVE: CASE EVENT DATE: 20181224
